FAERS Safety Report 6130344-7 (Version None)
Quarter: 2009Q1

REPORT INFORMATION
  Report Type: 
  Country: None (occurrence: None)
  Receive Date: 20090324
  Receipt Date: 20090319
  Transmission Date: 20090719
  Serious: No
  Sender: FDA-Public Use
  Company Number: US-B.I. PHARMACEUTICALS,INC./RIDGEFIELD-2009-BP-02404BP

PATIENT
  Age: 65 Year
  Sex: Male
  Weight: 86 kg

DRUGS (8)
  1. FLOMAX [Suspect]
     Indication: BENIGN PROSTATIC HYPERPLASIA
     Dosage: .8MG
     Dates: start: 20050101
  2. ENALAPRIL MALEATE [Concomitant]
     Dosage: 10MG
  3. TOPROL-XL [Concomitant]
     Dosage: 12.5MG
  4. LIPITOR [Concomitant]
  5. ZETIA [Concomitant]
  6. NIASPAN [Concomitant]
  7. FINASTERIDE [Concomitant]
  8. OMEPRAZOLE [Concomitant]
     Dosage: 20MG

REACTIONS (2)
  - DYSURIA [None]
  - THERAPEUTIC RESPONSE DECREASED [None]
